FAERS Safety Report 8799296 (Version 8)
Quarter: 2018Q3

REPORT INFORMATION
  Report Type: Spontaneous
  Country: US (occurrence: US)
  Receive Date: 20120920
  Receipt Date: 20180927
  Transmission Date: 20181010
  Serious: Yes (Hospitalization, Disabling, Other)
  Sender: FDA-Public Use
  Company Number: US-009507513-1209USA004344

PATIENT
  Sex: Female

DRUGS (6)
  1. BONIVA [Concomitant]
     Active Substance: IBANDRONATE SODIUM
     Indication: MENOPAUSAL SYMPTOMS PROPHYLAXIS
     Dosage: 1 WEEKLY?1 MONTHLY
     Dates: start: 2008, end: 2010
  2. FOSAMAX [Suspect]
     Active Substance: ALENDRONATE SODIUM
     Indication: ANKLE FRACTURE
  3. BONIVA [Concomitant]
     Active Substance: IBANDRONATE SODIUM
     Indication: ANKLE FRACTURE
  4. FOSAMAX [Suspect]
     Active Substance: ALENDRONATE SODIUM
     Indication: MENOPAUSAL SYMPTOMS PROPHYLAXIS
     Dosage: 70 MG, QW
     Route: 048
     Dates: start: 1998, end: 200604
  5. FOSAMAX PLUS D [Suspect]
     Active Substance: ALENDRONATE SODIUM\CHOLECALCIFEROL
     Indication: OSTEOPOROSIS
     Dosage: 70/2800 MG
     Route: 048
     Dates: start: 2006, end: 2010
  6. FOSAMAX [Suspect]
     Active Substance: ALENDRONATE SODIUM
     Indication: OSTEOPOROSIS
     Dosage: UNK
     Route: 048
     Dates: start: 1999, end: 2010

REACTIONS (19)
  - Meniscus removal [Unknown]
  - Joint injury [Unknown]
  - Hypertension [Unknown]
  - Fall [Unknown]
  - Bursitis [Not Recovered/Not Resolved]
  - Intramedullary rod insertion [Unknown]
  - Femur fracture [Unknown]
  - Biopsy stomach [Unknown]
  - Patellofemoral pain syndrome [Unknown]
  - Arthralgia [Unknown]
  - Hysterectomy [Unknown]
  - Meniscus injury [Unknown]
  - Tooth extraction [Unknown]
  - Osteoporosis [Unknown]
  - Osteopenia [Unknown]
  - Salpingo-oophorectomy bilateral [Unknown]
  - Stress fracture [Unknown]
  - Gastrointestinal mucosal disorder [Unknown]
  - Blood cholesterol increased [Unknown]

NARRATIVE: CASE EVENT DATE: 1999
